FAERS Safety Report 7550628-5 (Version None)
Quarter: 2011Q2

REPORT INFORMATION
  Report Type: 
  Country: None (occurrence: None)
  Receive Date: 20110616
  Receipt Date: 20110609
  Transmission Date: 20111010
  Serious: Yes (Hospitalization)
  Sender: FDA-Public Use
  Company Number: US-SHIRE-ALL1-2011-01808

PATIENT
  Sex: Male

DRUGS (1)
  1. FOSRENOL [Suspect]
     Indication: HYPERPHOSPHATAEMIA
     Dosage: 1000 MG, OTHER(WITH MEALS)
     Route: 048
     Dates: start: 20100101

REACTIONS (3)
  - CONSTIPATION [None]
  - ADVERSE EVENT [None]
  - HAEMATOCHEZIA [None]
